FAERS Safety Report 7888133 (Version 3)
Quarter: 2012Q4

REPORT INFORMATION
  Report Type: 
  Country: US (occurrence: US)
  Receive Date: 20110406
  Receipt Date: 20121023
  Transmission Date: 20130627
  Serious: Yes (Hospitalization, Other)
  Sender: FDA-Public Use
  Company Number: US-ROXANE LABORATORIES, INC.-2011-RO-00451RO

PATIENT
  Age: 70 Year
  Sex: Female
  Weight: 59 kg

DRUGS (19)
  1. DEXAMETHASONE [Suspect]
     Indication: MULTIPLE MYELOMA
     Dosage: 20 mg
     Route: 048
     Dates: start: 20101025, end: 20101104
  2. PD-332,991 [Suspect]
     Indication: MULTIPLE MYELOMA
     Dosage: 100 mg
     Route: 048
     Dates: start: 20101018, end: 20101110
  3. BORTEZOMIB [Suspect]
     Indication: MULTIPLE MYELOMA
     Dosage: 1.7 mg
     Route: 042
     Dates: start: 20101025, end: 20101104
  4. DEXAMETHASONE [Suspect]
     Indication: MULTIPLE MYELOMA
     Dosage: 40 mg
     Route: 042
     Dates: start: 20101123, end: 20101126
  5. CYCLOPHOSPHAMIDE [Suspect]
     Indication: MULTIPLE MYELOMA
     Dosage: 608 mg
     Route: 042
     Dates: start: 20101123, end: 20101126
  6. ETOPOSIDE [Suspect]
     Indication: MULTIPLE MYELOMA
     Dosage: 61 mg
     Route: 042
     Dates: start: 20101123, end: 20101126
  7. CISPLATIN [Suspect]
     Indication: MULTIPLE MYELOMA
     Dosage: 15 mg
     Route: 042
     Dates: start: 20101123, end: 20101126
  8. ACYCLOVIR [Concomitant]
     Indication: INFECTION
     Dates: start: 20100108
  9. DARBEPOETIN ALFA [Concomitant]
     Indication: ANAEMIA
     Dates: start: 20100108
  10. FAMOTIDINE [Concomitant]
     Indication: GASTROOESOPHAGEAL REFLUX DISEASE
     Dates: start: 20100108
  11. FLUCONAZOLE [Concomitant]
     Indication: INFECTION
     Dates: start: 20100108
  12. LIDOCAINE [Concomitant]
     Indication: PAIN
     Dates: start: 20101018
  13. OXYCODONE [Concomitant]
     Indication: PAIN
     Dates: start: 20101025
  14. PROCHLORPERAZINE MALEATE [Concomitant]
     Indication: NAUSEA
     Dates: start: 20100108
  15. ZOLEDRONIC ACID [Concomitant]
     Indication: BONE DISORDER
     Dates: start: 2009
  16. TYLENOL WITH CODEINE NO. 3 [Concomitant]
     Indication: PAIN
     Dates: start: 20101018, end: 20101130
  17. BICITRA [Concomitant]
     Indication: PH URINE DECREASED
     Dates: start: 20101122, end: 20101130
  18. LEVAQUIN [Concomitant]
     Indication: URINARY TRACT INFECTION
     Dates: start: 20101117, end: 20101122
  19. ZITHROMAX [Concomitant]
     Indication: UPPER RESPIRATORY TRACT INFECTION
     Dates: start: 20101124, end: 20101126

REACTIONS (9)
  - Urinary tract infection [Recovered/Resolved]
  - Upper respiratory tract infection [Unknown]
  - Mental status changes [Recovered/Resolved]
  - Asthenia [Recovered/Resolved]
  - Pancytopenia [Unknown]
  - Staphylococcus test positive [Unknown]
  - Influenza [Unknown]
  - Acute sinusitis [Unknown]
  - Pneumonia [Unknown]
